FAERS Safety Report 15732996 (Version 1)
Quarter: 2018Q4

REPORT INFORMATION
  Report Type: Spontaneous
  Country: US (occurrence: US)
  Receive Date: 20181218
  Receipt Date: 20181218
  Transmission Date: 20190205
  Serious: Yes (Other)
  Sender: FDA-Public Use
  Company Number: US-CONCORDIA PHARMACEUTICALS INC.-GSH201812-004147

PATIENT
  Age: 14 Year
  Sex: Male

DRUGS (11)
  1. ENTOCORT EC [Suspect]
     Active Substance: BUDESONIDE
     Indication: COLITIS
     Dosage: DECREASE HIS DOSE
  2. INFLIXIMAB [Suspect]
     Active Substance: INFLIXIMAB
     Indication: COLITIS
  3. INTERFERON-GAMMA [Suspect]
     Active Substance: INTERFERON GAMMA
     Indication: COLITIS
  4. 6-MERCAPTOPURINE [Suspect]
     Active Substance: MERCAPTOPURINE
     Indication: COLITIS
  5. PREDNISONE. [Suspect]
     Active Substance: PREDNISONE
     Indication: COLITIS
  6. MESALAMINE. [Suspect]
     Active Substance: MESALAMINE
     Indication: COLITIS
  7. ADALIMUMAB [Suspect]
     Active Substance: ADALIMUMAB
     Indication: COLITIS
  8. HYDROXYCHLOROQUINE [Suspect]
     Active Substance: HYDROXYCHLOROQUINE
     Indication: COLITIS
  9. AZATHIOPRINE. [Suspect]
     Active Substance: AZATHIOPRINE
     Indication: COLITIS
  10. METHOTREXATE. [Suspect]
     Active Substance: METHOTREXATE
     Indication: COLITIS
  11. ENTOCORT EC [Suspect]
     Active Substance: BUDESONIDE
     Indication: COLITIS

REACTIONS (2)
  - Disease recurrence [Unknown]
  - Therapy non-responder [Unknown]
